FAERS Safety Report 5444135-3 (Version None)
Quarter: 2007Q3

REPORT INFORMATION
  Report Type: 
  Country: None (occurrence: None)
  Receive Date: 20070905
  Receipt Date: 20070827
  Transmission Date: 20080115
  Serious: Yes (Hospitalization)
  Sender: FDA-Public Use
  Company Number: JP-ABBOTT-07P-087-0377538-00

PATIENT
  Sex: Male
  Weight: 50 kg

DRUGS (4)
  1. CLARITHROMYCIN [Suspect]
     Indication: MYCOBACTERIAL INFECTION
     Route: 048
     Dates: start: 20020101, end: 20070810
  2. VALSARTAN [Concomitant]
     Indication: HYPERTENSION
     Route: 048
  3. INDAPAMIDE [Concomitant]
     Indication: HYPERTENSION
     Route: 048
     Dates: end: 20070806
  4. MEFRUSIDE [Concomitant]
     Indication: HYPERTENSION
     Route: 048
     Dates: start: 20070807

REACTIONS (4)
  - ANOREXIA [None]
  - CHEST PAIN [None]
  - OESOPHAGEAL ULCER HAEMORRHAGE [None]
  - PYREXIA [None]
